FAERS Safety Report 25297575 (Version 2)
Quarter: 2025Q3

REPORT INFORMATION
  Report Type: Spontaneous
  Country: US (occurrence: US)
  Receive Date: 20250511
  Receipt Date: 20250803
  Transmission Date: 20251020
  Serious: Yes (Other)
  Sender: ALEXION PHARMACEUTICALS
  Company Number: US-AstraZeneca-CH-00863879A

PATIENT
  Sex: Female

DRUGS (1)
  1. BREZTRI [Suspect]
     Active Substance: BUDESONIDE\FORMOTEROL\GLYCOPYRROLATE

REACTIONS (6)
  - Multiple sclerosis [Unknown]
  - Device use issue [Unknown]
  - Wrong technique in device usage process [Unknown]
  - Chronic obstructive pulmonary disease [Unknown]
  - Visual impairment [Unknown]
  - Device malfunction [Unknown]
